FAERS Safety Report 6355684-8 (Version None)
Quarter: 2009Q3

REPORT INFORMATION
  Report Type: 
  Country: None (occurrence: None)
  Receive Date: 20090910
  Receipt Date: 20090828
  Transmission Date: 20100115
  Serious: Yes (Hospitalization, Other)
  Sender: FDA-Public Use
  Company Number: 2009AL005782

PATIENT
  Age: 75 Year
  Sex: Male

DRUGS (11)
  1. METFORMIN HYDROCHLORIDE [Suspect]
     Indication: DIABETES MELLITUS
     Dosage: 500 MG;BID;PO
     Route: 048
     Dates: start: 20060101
  2. RAMIPRIL [Suspect]
     Indication: CARDIAC FAILURE
     Dosage: 5 MG;BID;PO
     Route: 048
     Dates: start: 20060101
  3. AMIODARONE HCL [Concomitant]
  4. OMEPRAZOLE [Concomitant]
  5. CARDENSIEL [Concomitant]
  6. LEVOTHYROXINE SODIUM [Concomitant]
  7. ROVAMYCINE [Concomitant]
  8. LASIX [Concomitant]
  9. PREVISCAN [Concomitant]
  10. LANTUS [Concomitant]
  11. ALDACTONE [Concomitant]

REACTIONS (1)
  - PURPURA [None]
